FAERS Safety Report 8085932-8 (Version None)
Quarter: 2012Q1

REPORT INFORMATION
  Report Type: 
  Country: None (occurrence: None)
  Receive Date: 20120128
  Receipt Date: 20110504
  Transmission Date: 20120608
  Serious: No
  Sender: FDA-Public Use
  Company Number: US-ABBOTT-11P-163-0723584-00

PATIENT
  Age: 23 Year
  Sex: Female

DRUGS (3)
  1. HUMIRA [Suspect]
     Indication: CROHN'S DISEASE
     Dates: start: 20101101
  2. XANAX [Concomitant]
     Indication: ANXIETY
     Dosage: AS NEEDED
  3. TRI-SPRINTEC [Concomitant]
     Indication: CONTRACEPTION

REACTIONS (1)
  - CYSTITIS [None]
